FAERS Safety Report 23749703 (Version 1)
Quarter: 2024Q2

REPORT INFORMATION
  Report Type: Spontaneous
  Country: US (occurrence: US)
  Receive Date: 20240416
  Receipt Date: 20240416
  Transmission Date: 20240716
  Serious: Yes (Hospitalization, Other)
  Sender: FDA-Public Use
  Company Number: US-JNJFOC-20240415306

PATIENT
  Sex: Male

DRUGS (5)
  1. INVEGA SUSTENNA [Suspect]
     Active Substance: PALIPERIDONE PALMITATE
     Indication: Schizophrenia
     Route: 030
  2. INVEGA SUSTENNA [Suspect]
     Active Substance: PALIPERIDONE PALMITATE
     Route: 030
  3. INVEGA SUSTENNA [Suspect]
     Active Substance: PALIPERIDONE PALMITATE
     Route: 030
     Dates: start: 2014, end: 2018
  4. ZYPREXA [Suspect]
     Active Substance: OLANZAPINE
     Indication: Product used for unknown indication
     Route: 065
  5. CLOZARIL [Concomitant]
     Active Substance: CLOZAPINE
     Indication: Product used for unknown indication

REACTIONS (13)
  - Respiratory arrest [Unknown]
  - Cardiac arrest [Unknown]
  - Renal impairment [Unknown]
  - Hypotension [Unknown]
  - Hallucination, auditory [Unknown]
  - Behaviour disorder [Unknown]
  - Drug ineffective [Unknown]
  - Anger [Unknown]
  - Anxiety [Unknown]
  - General physical health deterioration [Unknown]
  - Conversion disorder [Unknown]
  - Adverse reaction [Unknown]
  - Product expiration date issue [Unknown]
